FAERS Safety Report 8603470-8 (Version None)
Quarter: 2012Q3

REPORT INFORMATION
  Report Type: 
  Country: None (occurrence: None)
  Receive Date: 20120817
  Receipt Date: 20120814
  Transmission Date: 20120928
  Serious: Yes (Other)
  Sender: FDA-Public Use
  Company Number: US-PFIZER INC-2012199047

PATIENT
  Age: 46 Year
  Sex: Female
  Weight: 70.295 kg

DRUGS (3)
  1. LYRICA [Suspect]
     Dosage: 75 MG, 2X/DAY
     Route: 048
     Dates: start: 20080101
  2. LYRICA [Suspect]
     Indication: OCCIPITAL NEURALGIA
     Dosage: 50 MG, 2X/DAY
     Route: 048
     Dates: start: 20080901, end: 20080101
  3. SYNTHROID [Concomitant]
     Dosage: UNK

REACTIONS (2)
  - DRUG INEFFECTIVE [None]
  - BREAST CANCER [None]
